FAERS Safety Report 14856900 (Version 2)
Quarter: 2021Q3

REPORT INFORMATION
  Report Type: Spontaneous
  Country: US (occurrence: US)
  Receive Date: 20180507
  Receipt Date: 20210819
  Transmission Date: 20211014
  Serious: Yes (Other)
  Sender: FDA-Public Use
  Company Number: US-ROCHE-2038116

PATIENT
  Sex: Female
  Weight: 75.82 kg

DRUGS (10)
  1. ESBRIET [Suspect]
     Active Substance: PIRFENIDONE
     Dosage: 2?3 TIMES A DAY
     Route: 048
     Dates: start: 2014
  2. TOVIAZ [Concomitant]
     Active Substance: FESOTERODINE FUMARATE
  3. XYZAL [Concomitant]
     Active Substance: LEVOCETIRIZINE DIHYDROCHLORIDE
  4. HCTZ [Concomitant]
     Active Substance: HYDROCHLOROTHIAZIDE
  5. AMLODIPINE [Concomitant]
     Active Substance: AMLODIPINE BESYLATE
  6. ESBRIET [Suspect]
     Active Substance: PIRFENIDONE
     Indication: IDIOPATHIC PULMONARY FIBROSIS
     Route: 048
     Dates: start: 20170925
  7. PRILOSEC [Concomitant]
     Active Substance: OMEPRAZOLE MAGNESIUM
     Indication: GASTROOESOPHAGEAL REFLUX DISEASE
  8. LOSARTAN. [Concomitant]
     Active Substance: LOSARTAN
  9. PEPCID [Concomitant]
     Active Substance: FAMOTIDINE
     Indication: GASTROOESOPHAGEAL REFLUX DISEASE
  10. LORATADINE. [Concomitant]
     Active Substance: LORATADINE

REACTIONS (5)
  - Underdose [Unknown]
  - Hypoacusis [Recovering/Resolving]
  - Oxygen saturation decreased [Unknown]
  - Intentional product misuse [Unknown]
  - Cyst [Recovered/Resolved]
